FAERS Safety Report 19175647 (Version 1)
Quarter: 2021Q2

REPORT INFORMATION
  Report Type: Spontaneous
  Country: AT (occurrence: AT)
  Receive Date: 20210423
  Receipt Date: 20210423
  Transmission Date: 20210717
  Serious: No
  Sender: FDA-Public Use
  Company Number: AT-LUPIN PHARMACEUTICALS INC.-2021-04936

PATIENT
  Age: 52 Year
  Sex: Male

DRUGS (2)
  1. AZACITIDINE. [Suspect]
     Active Substance: AZACITIDINE
     Indication: MYELODYSPLASTIC SYNDROME
     Dosage: 75 MILLIGRAM/SQ. METER (STANDARD DOSE OF 75 MG/M 2 DAILY FOR THE FIRST 7 DAYS OF A 28?DAY CYCLE (6 D
     Route: 058
     Dates: start: 201512
  2. ETANERCEPT [Concomitant]
     Active Substance: ETANERCEPT
     Indication: PSORIATIC ARTHROPATHY
     Dosage: UNK
     Route: 065
     Dates: start: 2010

REACTIONS (2)
  - Injection site haematoma [Unknown]
  - Injection site pruritus [Unknown]
